FAERS Safety Report 8102755-1 (Version None)
Quarter: 2012Q1

REPORT INFORMATION
  Report Type: 
  Country: None (occurrence: None)
  Receive Date: 20120126
  Receipt Date: 20120116
  Transmission Date: 20120608
  Serious: Yes (Hospitalization)
  Sender: FDA-Public Use
  Company Number: B0777049A

PATIENT
  Age: 49 Year
  Sex: Male

DRUGS (4)
  1. VENLAFAXINE HYDROCHLORIDE [Suspect]
     Dosage: 4.2 GRAM(S)
  2. OLANZAPINE [Suspect]
     Dosage: 2.5 GRAM(S)
  3. ETHANOL (FORMULATION UNKNOWN) (ALCOHOL) [Suspect]
  4. VALACYCLOVIR HYDROCHLORIDE [Suspect]
     Dosage: 30 GRAM(S)

REACTIONS (8)
  - TACHYCARDIA [None]
  - LACTIC ACIDOSIS [None]
  - CRYSTALLURIA [None]
  - MULTIPLE DRUG OVERDOSE [None]
  - SEDATION [None]
  - RENAL FAILURE ACUTE [None]
  - THROMBOCYTOPENIA [None]
  - HYPOTENSION [None]
